FAERS Safety Report 4927887-8 (Version None)
Quarter: 2006Q1

REPORT INFORMATION
  Report Type: 
  Country: None (occurrence: None)
  Receive Date: 20060228
  Receipt Date: 20060223
  Transmission Date: 20060701
  Serious: Yes (Other)
  Sender: FDA-Public Use
  Company Number: DE-GLAXOSMITHKLINE-D0048835A

PATIENT
  Weight: 7 kg

DRUGS (1)
  1. ZOVIRAX [Suspect]
     Indication: VARICELLA
     Route: 042

REACTIONS (2)
  - APPLICATION SITE REACTION [None]
  - PLEURAL EFFUSION [None]
